FAERS Safety Report 4501444-X (Version None)
Quarter: 2004Q4

REPORT INFORMATION
  Report Type: 
  Country: None (occurrence: None)
  Receive Date: 20041110
  Receipt Date: 20041104
  Transmission Date: 20050328
  Serious: Yes (Other)
  Sender: FDA-Public Use
  Company Number: USA-2004-0017547

PATIENT
  Sex: Male

DRUGS (1)
  1. OXYCONTIN [Suspect]
     Dosage: 160 MG, TID

REACTIONS (4)
  - ANXIETY [None]
  - FEELING ABNORMAL [None]
  - NIGHTMARE [None]
  - SUICIDAL IDEATION [None]
